FAERS Safety Report 14931207 (Version 1)
Quarter: 2018Q2

REPORT INFORMATION
  Report Type: Spontaneous
  Country: US (occurrence: US)
  Receive Date: 20180524
  Receipt Date: 20180524
  Transmission Date: 20180711
  Serious: No
  Sender: FDA-Public Use
  Company Number: US-ASTRAZENECA-2018SE64911

PATIENT
  Sex: Male
  Weight: 79.8 kg

DRUGS (3)
  1. BYDUREON [Suspect]
     Active Substance: EXENATIDE
     Indication: DIABETES MELLITUS
     Route: 065
     Dates: start: 201803
  2. PRILOSEC [Suspect]
     Active Substance: OMEPRAZOLE MAGNESIUM
     Indication: ABDOMINAL DISCOMFORT
     Dosage: TWO TIMES A DAY
     Route: 048
     Dates: start: 2014, end: 2018
  3. NOVOLOG [Concomitant]
     Active Substance: INSULIN ASPART

REACTIONS (6)
  - Functional gastrointestinal disorder [Unknown]
  - Diarrhoea [Unknown]
  - Gastrointestinal disorder [Unknown]
  - Blood glucose decreased [Unknown]
  - Abnormal faeces [Unknown]
  - Drug dose omission [Unknown]
